FAERS Safety Report 5165277-6 (Version None)
Quarter: 2006Q4

REPORT INFORMATION
  Report Type: 
  Country: None (occurrence: None)
  Receive Date: 20061124
  Receipt Date: 20061114
  Transmission Date: 20070319
  Serious: Yes (Hospitalization)
  Sender: FDA-Public Use
  Company Number: 2006142086

PATIENT
  Sex: Female

DRUGS (2)
  1. LYRICA [Suspect]
     Indication: ANXIETY
     Dosage: (75 MG), ORAL
     Route: 048
  2. LYRICA [Suspect]
     Indication: DEPRESSION
     Dosage: (75 MG), ORAL
     Route: 048

REACTIONS (1)
  - DRUG INEFFECTIVE [None]
